FAERS Safety Report 4616808-3 (Version None)
Quarter: 2005Q2

REPORT INFORMATION
  Report Type: 
  Country: None (occurrence: None)
  Receive Date: 20050311
  Receipt Date: 20050107
  Transmission Date: 20051028
  Serious: Yes (Other)
  Sender: FDA-Public Use
  Company Number: M04-341-064

PATIENT
  Age: 62 Year
  Sex: Female
  Weight: 59 kg

DRUGS (1)
  1. VELCADE [Suspect]
     Indication: MULTIPLE MYELOMA
     Dosage: 1.10 MG, IV BOLUS
     Route: 040
     Dates: start: 20031001

REACTIONS (3)
  - FEELING JITTERY [None]
  - INSOMNIA [None]
  - OEDEMA PERIPHERAL [None]
